FAERS Safety Report 15639943 (Version 2)
Quarter: 2018Q4

REPORT INFORMATION
  Report Type: Report from Study
  Country: US (occurrence: US)
  Receive Date: 20181120
  Receipt Date: 20181211
  Transmission Date: 20190205
  Serious: Yes (Death, Hospitalization, Other)
  Sender: FDA-Public Use
  Company Number: US-GILEAD-2018-0375116

PATIENT
  Age: 71 Year
  Sex: Female

DRUGS (21)
  1. SPIRIVA [Concomitant]
     Active Substance: TIOTROPIUM BROMIDE MONOHYDRATE
  2. VITAMIN B12 [Concomitant]
     Active Substance: CYANOCOBALAMIN
  3. AMBRISENTAN [Suspect]
     Active Substance: AMBRISENTAN
     Indication: PULMONARY ARTERIAL HYPERTENSION
  4. PRAVASTATIN. [Concomitant]
     Active Substance: PRAVASTATIN
  5. FUROSEMIDE. [Concomitant]
     Active Substance: FUROSEMIDE
  6. AMBRISENTAN [Suspect]
     Active Substance: AMBRISENTAN
     Indication: HEART DISEASE CONGENITAL
     Dosage: 10 MG, QD
     Route: 048
     Dates: start: 201804, end: 201811
  7. ASPIRIN (E.C.) [Concomitant]
     Active Substance: ASPIRIN
  8. FLUCONAZOLE. [Concomitant]
     Active Substance: FLUCONAZOLE
  9. ROXICODONE [Concomitant]
     Active Substance: OXYCODONE HYDROCHLORIDE
  10. DUONEB [Concomitant]
     Active Substance: ALBUTEROL SULFATE\IPRATROPIUM BROMIDE
  11. TYLENOL 8HR [Concomitant]
     Active Substance: ACETAMINOPHEN
  12. MAXIPIME [Concomitant]
     Active Substance: CEFEPIME HYDROCHLORIDE
  13. NICODERM CQ [Concomitant]
     Active Substance: NICOTINE
  14. MARINOL [ALLOPURINOL] [Concomitant]
  15. REMERON [Concomitant]
     Active Substance: MIRTAZAPINE
  16. GUAIFENESIN. [Concomitant]
     Active Substance: GUAIFENESIN
  17. REVATIO [Concomitant]
     Active Substance: SILDENAFIL CITRATE
  18. LEVOTHYROXINE. [Concomitant]
     Active Substance: LEVOTHYROXINE
  19. ALBUTEROL HFA [Concomitant]
     Active Substance: ALBUTEROL SULFATE
  20. PANTOPRAZOLE [Concomitant]
     Active Substance: PANTOPRAZOLE
  21. LOVENOX [Concomitant]
     Active Substance: ENOXAPARIN SODIUM

REACTIONS (6)
  - Peptic ulcer perforation [Unknown]
  - Product use issue [Recovered/Resolved]
  - Liver abscess [Unknown]
  - Death [Fatal]
  - Septic shock [Unknown]
  - Off label use [Not Recovered/Not Resolved]

NARRATIVE: CASE EVENT DATE: 201804
